FAERS Safety Report 4486221-0 (Version None)
Quarter: 2004Q4

REPORT INFORMATION
  Report Type: 
  Country: None (occurrence: None)
  Receive Date: 20041021
  Receipt Date: 20041006
  Transmission Date: 20050328
  Serious: No
  Sender: FDA-Public Use
  Company Number: D01200300423

PATIENT
  Age: 69 Year
  Sex: Male

DRUGS (4)
  1. OXALIPLATIN - SOLUTION - 85 MG/M2 [Suspect]
     Dosage: 85 MG/M2 Q2W INTRAVENOUS NOS
     Route: 042
     Dates: start: 20030306, end: 20030306
  2. FLUOROURACIL [Suspect]
     Dosage: 400 MG/M2 AS IV BOLUS THEN 600 MG/M2 AS 22 HOURS CONTINUOUS INFUSION D1-D2 Q2W, INTRAVENOUS NOS
     Route: 042
     Dates: start: 20030306, end: 20030306
  3. SR57746 OR PLACEBO - CAPSULE - 1 MG [Suspect]
     Indication: CHEMOTHERAPY NEUROTOXICITY ATTENUATION
     Dosage: 1 MG QD ORAL
     Route: 048
     Dates: start: 20021227
  4. LEUCOVORIN CALCIUM [Suspect]
     Dosage: 200 MG/M2 AS 2 HOURS INFUSION ON D1-D2 Q2W INTRAVENOUS NOS
     Route: 042
     Dates: start: 20030306, end: 20030306

REACTIONS (8)
  - ABDOMINAL PAIN [None]
  - BLOOD CREATININE DECREASED [None]
  - BLOOD UREA DECREASED [None]
  - CONSTIPATION [None]
  - HAEMOGLOBIN DECREASED [None]
  - HIATUS HERNIA [None]
  - IMPAIRED GASTRIC EMPTYING [None]
  - OESOPHAGITIS [None]
